FAERS Safety Report 21374313 (Version 2)
Quarter: 2023Q1

REPORT INFORMATION
  Report Type: Spontaneous
  Country: AT (occurrence: AT)
  Receive Date: 20220926
  Receipt Date: 20230209
  Transmission Date: 20230418
  Serious: Yes (Hospitalization, Other)
  Sender: FDA-Public Use
  Company Number: AT-AMGEN-AUTSP2022163666

PATIENT
  Sex: Male

DRUGS (4)
  1. BLINCYTO [Suspect]
     Active Substance: BLINATUMOMAB
     Indication: Product used for unknown indication
     Dosage: 18 MICROGRAM ((DAY 88))
     Route: 065
     Dates: start: 20220711
  2. BLINCYTO [Suspect]
     Active Substance: BLINATUMOMAB
     Dosage: 56 MICROGRAM
     Route: 065
     Dates: start: 20220718, end: 20220802
  3. IMATINIB [Concomitant]
     Active Substance: IMATINIB
  4. DASATINIB [Concomitant]
     Active Substance: DASATINIB

REACTIONS (3)
  - Parkinson^s disease [Recovered/Resolved]
  - Insomnia [Recovered/Resolved]
  - Pleural effusion [Unknown]

NARRATIVE: CASE EVENT DATE: 20221101
